FAERS Safety Report 7597771-2 (Version None)
Quarter: 2011Q3

REPORT INFORMATION
  Report Type: 
  Country: None (occurrence: None)
  Receive Date: 20110708
  Receipt Date: 20110701
  Transmission Date: 20111222
  Serious: Yes (Other)
  Sender: FDA-Public Use
  Company Number: IT-GLAXOSMITHKLINE-B0731756A

PATIENT

DRUGS (2)
  1. XELODA [Concomitant]
     Dosage: 2000MG PER DAY
     Route: 048
     Dates: start: 20110112, end: 20110126
  2. LAPATINIB [Suspect]
     Indication: BREAST CANCER METASTATIC
     Route: 065
     Dates: start: 20110124, end: 20110202

REACTIONS (3)
  - GRANULOMA [None]
  - SKIN TOXICITY [None]
  - NAIL DISORDER [None]
